FAERS Safety Report 4949486-4 (Version None)
Quarter: 2006Q1

REPORT INFORMATION
  Report Type: 
  Country: None (occurrence: None)
  Receive Date: 20060321
  Receipt Date: 20060310
  Transmission Date: 20060701
  Serious: Yes (Hospitalization)
  Sender: FDA-Public Use
  Company Number: US-SANOFI-SYNTHELABO-F03200600049

PATIENT
  Age: 737 Month
  Sex: Female

DRUGS (11)
  1. OXALIPLATIN [Suspect]
     Indication: COLON CANCER
     Route: 042
     Dates: start: 20051219, end: 20051219
  2. CETUXIMAB [Suspect]
     Indication: COLON CANCER
     Route: 042
     Dates: start: 20051121, end: 20051121
  3. BEVACIZUMAB [Suspect]
     Indication: COLON CANCER
     Route: 042
     Dates: start: 20051205, end: 20051205
  4. FLUOROURACIL [Suspect]
     Indication: COLON CANCER
     Dosage: 660 MG AS INTRAVENOUS PUSH; PUMP DELIVERING 3960 MG OVER 46 HOURS
     Route: 042
     Dates: start: 20051221, end: 20051221
  5. LEUCOVORIN CALCIUM [Suspect]
     Indication: COLON CANCER
     Route: 042
     Dates: start: 20051219, end: 20051219
  6. FERROUS GLUCONATE [Concomitant]
     Dosage: UNK
     Route: 048
  7. IBUPROFEN [Concomitant]
     Dosage: UNK
     Route: 048
  8. MAGNESIUM [Concomitant]
     Dosage: UNK
     Route: 048
  9. PRILOSEC [Concomitant]
     Dosage: UNK
     Route: 048
  10. TUMS [Concomitant]
     Dosage: UNK
     Route: 048
  11. FOSAMAX [Concomitant]
     Dosage: UNK
     Route: 048

REACTIONS (2)
  - ARTERIAL THROMBOSIS LIMB [None]
  - THROMBOSIS [None]
